FAERS Safety Report 12990835 (Version 1)
Quarter: 2016Q4

REPORT INFORMATION
  Report Type: Spontaneous
  Country: US (occurrence: US)
  Receive Date: 20161130
  Receipt Date: 20161130
  Transmission Date: 20170207
  Serious: Yes (Death, Life-Threatening, Disabling)
  Sender: FDA-Public Use
  Company Number: None

PATIENT
  Age: 69 Year
  Sex: Male
  Weight: 87.2 kg

DRUGS (1)
  1. ENOXAPARIN [Suspect]
     Active Substance: ENOXAPARIN
     Indication: PULMONARY EMBOLISM
     Route: 058
     Dates: start: 20161119, end: 20161124

REACTIONS (8)
  - Head injury [None]
  - Diarrhoea [None]
  - Acute respiratory failure [None]
  - Vomiting [None]
  - Clostridium test positive [None]
  - Cerebral haemorrhage [None]
  - Fall [None]
  - Hydrocephalus [None]

NARRATIVE: CASE EVENT DATE: 20161124
